FAERS Safety Report 9421736 (Version 2)
Quarter: 2013Q3

REPORT INFORMATION
  Report Type: Spontaneous
  Country: GB (occurrence: GB)
  Receive Date: 20130726
  Receipt Date: 20130808
  Transmission Date: 20140515
  Serious: Yes (Other)
  Sender: FDA-Public Use
  Company Number: GB-ROCHE-1253337

PATIENT
  Age: 76 Year
  Sex: Female
  Weight: 87 kg

DRUGS (9)
  1. RITUXIMAB [Suspect]
     Indication: RHEUMATOID ARTHRITIS
     Dosage: DATE OF LAST DOSE ADMINISTERED: MAY 2012
     Route: 042
     Dates: start: 20101112
  2. METHOTREXATE [Concomitant]
     Indication: RHEUMATOID ARTHRITIS
     Route: 048
     Dates: start: 20080104
  3. CO-CODAMOL [Concomitant]
     Indication: ARTHRALGIA
     Dosage: 30/500
     Route: 048
  4. SPIRONOLACTON [Concomitant]
     Route: 048
  5. OMEPRAZOLE [Concomitant]
     Route: 048
  6. FOLIC ACID [Concomitant]
     Route: 048
     Dates: start: 20080104
  7. SIMVASTATIN [Concomitant]
     Route: 065
  8. BISOPROLOL [Concomitant]
     Route: 065
  9. PERINDOPRIL [Concomitant]
     Route: 065

REACTIONS (2)
  - Portal hypertension [Recovered/Resolved]
  - Ascites [Recovered/Resolved]
